FAERS Safety Report 9041012 (Version 1)
Quarter: 2013Q1

REPORT INFORMATION
  Report Type: Report from Study
  Country: US (occurrence: US)
  Receive Date: 20130129
  Receipt Date: 20130129
  Transmission Date: 20140127
  Serious: No
  Sender: FDA-Public Use
  Company Number: US-ABBOTT-12P-163-0902009-00

PATIENT
  Age: 55 Year
  Sex: Female

DRUGS (15)
  1. HUMIRA 40 MG/0.8 ML PEN [Suspect]
     Indication: RHEUMATOID ARTHRITIS
     Dates: start: 20120107
  2. OMEPRAZOLE [Concomitant]
     Indication: GASTROOESOPHAGEAL REFLUX DISEASE
     Dosage: 1 TABLET BEFORE MEALS
  3. AMLODIPINE [Concomitant]
     Indication: HYPERTENSION
     Dosage: DAILY
  4. POTASSIUM CHLORIDE E.R [Concomitant]
     Indication: MINERAL SUPPLEMENTATION
  5. TRAMADOL [Concomitant]
     Indication: PAIN
     Dosage: 1 TABLET EVERY 6 HOURS AS NEEDED
  6. FOLIC ACID [Concomitant]
     Indication: VITAMIN SUPPLEMENTATION
     Dosage: DAILY
  7. NEURONTIN [Concomitant]
     Indication: PRODUCT USED FOR UNKNOWN INDICATION
  8. BABY ASA [Concomitant]
     Indication: PROPHYLAXIS
     Dosage: DAILY
  9. PREDNISONE TAPER [Concomitant]
     Indication: ARTHRITIS
     Dosage: DAILY
  10. METHOTREXATE [Concomitant]
     Indication: RHEUMATOID ARTHRITIS
     Dosage: 6 TABS WEEKLY
  11. LEXAPRO [Concomitant]
     Indication: DEPRESSION
     Dosage: DAILY
  12. HTC [Concomitant]
     Indication: DIURETIC THERAPY
     Dosage: DAILY
  13. HTC [Concomitant]
     Indication: BLOOD PRESSURE DECREASED
  14. CITRACAL WITH VITAMIN D [Concomitant]
     Indication: VITAMIN SUPPLEMENTATION
     Dosage: DAILY
  15. PSYLLIUM [Concomitant]
     Indication: PRODUCT USED FOR UNKNOWN INDICATION
     Dosage: 2 CAPS IN AM AND 2 CAPS AT BEDTIME

REACTIONS (1)
  - Injection site bruising [Recovering/Resolving]
